FAERS Safety Report 22060842 (Version 1)
Quarter: 2023Q1

REPORT INFORMATION
  Report Type: Spontaneous
  Country: US (occurrence: US)
  Receive Date: 20230303
  Receipt Date: 20230303
  Transmission Date: 20230418
  Serious: Yes (Other)
  Sender: FDA-Public Use
  Company Number: US-BAYER-2023A023787

PATIENT
  Age: 65 Year
  Sex: Female

DRUGS (1)
  1. STIVARGA [Suspect]
     Active Substance: REGORAFENIB
     Indication: Rectal adenocarcinoma
     Dosage: 160 MG, QD, FOR 3 WEEKS AND THEN 1 WEEK OFF FOR 28-DAY CYCLE
     Route: 048

REACTIONS (6)
  - Recall phenomenon [None]
  - Proctitis [None]
  - Blood loss anaemia [None]
  - Rectal haemorrhage [None]
  - Proctalgia [None]
  - Rectal tenesmus [None]
